FAERS Safety Report 5587326-3 (Version None)
Quarter: 2008Q1

REPORT INFORMATION
  Report Type: 
  Country: None (occurrence: None)
  Receive Date: 20080110
  Receipt Date: 20080102
  Transmission Date: 20080703
  Serious: Yes (Other)
  Sender: FDA-Public Use
  Company Number: NL-ELI_LILLY_AND_COMPANY-NL200707002533

PATIENT
  Sex: Male
  Weight: 50 kg

DRUGS (3)
  1. STRATTERA [Suspect]
     Dosage: 25 MG, UNK
     Route: 048
     Dates: start: 20050701
  2. STRATTERA [Suspect]
     Dosage: UNKNOWN DOSAGE INCREASE
     Route: 065
  3. MELATONIN [Concomitant]
     Indication: SLEEP DISORDER
     Dosage: UNK, UNKNOWN
     Route: 065

REACTIONS (13)
  - ABDOMINAL DISTENSION [None]
  - ABDOMINAL PAIN UPPER [None]
  - BLOOD IMMUNOGLOBULIN E INCREASED [None]
  - BRONCHIAL HYPERREACTIVITY [None]
  - CYSTITIS [None]
  - DYSPNOEA [None]
  - FATIGUE [None]
  - FLANK PAIN [None]
  - HYPERVENTILATION [None]
  - LISTLESS [None]
  - MUSCULOSKELETAL CHEST PAIN [None]
  - PERIPHERAL COLDNESS [None]
  - URINARY TRACT INFECTION [None]
